FAERS Safety Report 6313549-1 (Version None)
Quarter: 2009Q3

REPORT INFORMATION
  Report Type: 
  Country: None (occurrence: None)
  Receive Date: 20090814
  Receipt Date: 20090814
  Transmission Date: 20100115
  Serious: Yes (Hospitalization)
  Sender: FDA-Public Use
  Company Number: None

PATIENT
  Sex: Female
  Weight: 93.18 kg

DRUGS (3)
  1. CARBOPLATIN [Suspect]
     Dosage: 1575.4 MG
  2. ERBITUX [Suspect]
     Dosage: 3950.5 MG
  3. TAXOL [Suspect]
     Dosage: 555.74 MG

REACTIONS (4)
  - DEHYDRATION [None]
  - DRUG TOXICITY [None]
  - FEBRILE NEUTROPENIA [None]
  - NAUSEA [None]
